FAERS Safety Report 9885850 (Version 2)
Quarter: 2014Q1

REPORT INFORMATION
  Report Type: Spontaneous
  Country: JP (occurrence: JP)
  Receive Date: 20140210
  Receipt Date: 20140210
  Transmission Date: 20141002
  Serious: Yes (Hospitalization, Other)
  Sender: FDA-Public Use
  Company Number: JP-PFIZER INC-2014006458

PATIENT
  Age: 65 Year
  Sex: Female
  Weight: 51.8 kg

DRUGS (10)
  1. JZOLOFT [Suspect]
     Indication: DEPRESSION
     Dosage: 25 MG, 1X/DAY
     Route: 048
     Dates: start: 201304
  2. NELUROLEN [Concomitant]
     Indication: INSOMNIA
     Dosage: 10 MG, 1X/DAY
     Dates: start: 20140103
  3. SENNARIDE [Concomitant]
     Indication: CONSTIPATION
     Dosage: 24 MG, 1X/DAY
     Dates: start: 20140103
  4. SILECE [Concomitant]
     Indication: INSOMNIA
     Dosage: 2 MG, 1X/DAY
     Dates: start: 20140103
  5. RISPERDAL [Concomitant]
     Indication: INSOMNIA
     Dosage: 1 MG/ML, 1X/DAY
     Dates: start: 20140103
  6. NORVASC [Concomitant]
     Indication: HYPERTENSION
     Dosage: 5 MG, 2X/DAY
     Dates: start: 20140103
  7. BLOPRESS [Concomitant]
     Indication: HYPERTENSION
     Dosage: 8 MG, 1X/DAY
     Dates: start: 20140103
  8. LIPITOR [Concomitant]
     Indication: HYPERLIPIDAEMIA
     Dosage: 10 MG, 1X/DAY
     Dates: start: 20140103
  9. GASMOTIN [Concomitant]
     Indication: ABDOMINAL DISCOMFORT
     Dosage: 15 MG, 3X/DAY
     Dates: start: 20140103
  10. EBASTEL [Concomitant]
     Indication: PRURITUS
     Dosage: 10 MG, 1X/DAY
     Dates: start: 20140103

REACTIONS (5)
  - Urine output decreased [Recovering/Resolving]
  - Urinary retention [Recovering/Resolving]
  - Blood creatine phosphokinase increased [Unknown]
  - Blood creatinine increased [Unknown]
  - Liver function test abnormal [Unknown]
